FAERS Safety Report 6817074-0 (Version None)
Quarter: 2010Q3

REPORT INFORMATION
  Report Type: 
  Country: None (occurrence: None)
  Receive Date: 20100706
  Receipt Date: 20100703
  Transmission Date: 20110219
  Serious: Yes (Death)
  Sender: FDA-Public Use
  Company Number: CO-ROCHE-713086

PATIENT
  Sex: Male

DRUGS (2)
  1. AVASTIN [Suspect]
     Indication: COLORECTAL CANCER
     Route: 042
     Dates: start: 20080418, end: 20100601
  2. XELODA [Suspect]
     Indication: COLORECTAL CANCER
     Dosage: FREQ: DAILY
     Route: 048
     Dates: start: 20080915, end: 20100601

REACTIONS (1)
  - DISEASE PROGRESSION [None]
